FAERS Safety Report 5414010-9 (Version None)
Quarter: 2007Q3

REPORT INFORMATION
  Report Type: 
  Country: None (occurrence: None)
  Receive Date: 20070814
  Receipt Date: 20070803
  Transmission Date: 20080115
  Serious: Yes (Hospitalization)
  Sender: FDA-Public Use
  Company Number: US-ELI_LILLY_AND_COMPANY-US200708000978

PATIENT
  Age: 60 Year
  Sex: Female
  Weight: 91.609 kg

DRUGS (7)
  1. BYETTA [Suspect]
     Indication: TYPE 2 DIABETES MELLITUS
     Dosage: 5 UG, UNKNOWN
     Dates: start: 20050101
  2. BYETTA [Suspect]
     Dosage: 10 UG, 2/D
     Route: 058
     Dates: end: 20070601
  3. BYETTA [Suspect]
     Dosage: 5 UG, 2/D
     Route: 058
     Dates: start: 20070601
  4. ACTOS [Concomitant]
     Indication: TYPE 2 DIABETES MELLITUS
     Dosage: 1 UNK, EACH MORNING
     Route: 048
     Dates: start: 20060101
  5. ACTOS [Concomitant]
     Dosage: 2 UNK, EACH EVENING
     Route: 048
     Dates: start: 20060101
  6. METFORMIN HCL [Concomitant]
     Indication: TYPE 2 DIABETES MELLITUS
     Dosage: 1 UNK, EACH MORNING
     Route: 048
     Dates: start: 20060101
  7. METFORMIN HCL [Concomitant]
     Dosage: 2 UNK, EACH EVENING
     Route: 048
     Dates: start: 20060101

REACTIONS (4)
  - KNEE ARTHROPLASTY [None]
  - NAUSEA [None]
  - SOMNOLENCE [None]
  - VOMITING [None]
